FAERS Safety Report 7210340-9 (Version None)
Quarter: 2011Q1

REPORT INFORMATION
  Report Type: 
  Country: None (occurrence: None)
  Receive Date: 20110105
  Receipt Date: 20101228
  Transmission Date: 20110831
  Serious: Yes (Hospitalization)
  Sender: FDA-Public Use
  Company Number: US-B.I. PHARMACEUTICALS,INC./RIDGEFIELD-2010-BP-14103BP

PATIENT
  Sex: Female

DRUGS (14)
  1. DEMINEX [Concomitant]
     Indication: DIURETIC THERAPY
  2. SYNTHROID [Concomitant]
     Indication: THYROID DISORDER
  3. VIT 6 [Concomitant]
     Indication: PROPHYLAXIS
  4. POTASSIUM CHLORIDE [Concomitant]
     Indication: MINERAL SUPPLEMENTATION
  5. VIT B [Concomitant]
     Indication: PROPHYLAXIS
  6. ATIVAN [Concomitant]
     Indication: ANXIETY
     Dosage: 1 MG
  7. ATIVAN [Concomitant]
     Indication: PANIC ATTACK
  8. PRIMIDONE [Concomitant]
     Indication: SLEEP DISORDER
  9. VIT C [Concomitant]
     Indication: PROPHYLAXIS
  10. PRADAXA [Suspect]
     Indication: ATRIAL FIBRILLATION
     Dosage: 150 MG
     Route: 048
     Dates: start: 20101101
  11. CALCIUM [Concomitant]
     Indication: PROPHYLAXIS
  12. ZOLOFT [Concomitant]
     Indication: DEPRESSION
  13. TRAMADOL [Concomitant]
     Indication: PAIN
     Dosage: 50 MG
  14. NITROGLYCERIN [Concomitant]

REACTIONS (6)
  - DIZZINESS [None]
  - PRURITUS [None]
  - KIDNEY INFECTION [None]
  - CYSTITIS [None]
  - NAUSEA [None]
  - BURNING SENSATION [None]
